FAERS Safety Report 20364297 (Version 1)
Quarter: 2022Q1

REPORT INFORMATION
  Report Type: Spontaneous
  Country: US (occurrence: None)
  Receive Date: 20220121
  Receipt Date: 20220121
  Transmission Date: 20220423
  Serious: No
  Sender: FDA-Public Use
  Company Number: None

PATIENT
  Age: 66 Year
  Sex: Male

DRUGS (1)
  1. VARENICLINE [Suspect]
     Active Substance: VARENICLINE
     Indication: Smoking cessation therapy
     Dosage: FREQUENCY : TWICE A DAY;?
     Route: 048
     Dates: end: 20211007

REACTIONS (4)
  - Loss of consciousness [None]
  - Impaired driving ability [None]
  - Road traffic accident [None]
  - Syncope [None]

NARRATIVE: CASE EVENT DATE: 20211007
